FAERS Safety Report 9920138 (Version 1)
Quarter: 2014Q1

REPORT INFORMATION
  Report Type: Spontaneous
  Country: IT (occurrence: US)
  Receive Date: 20140224
  Receipt Date: 20140224
  Transmission Date: 20141002
  Serious: Yes (Other)
  Sender: FDA-Public Use
  Company Number: IT-OTSUKA-US-2014-10319

PATIENT
  Sex: 0

DRUGS (2)
  1. BUSULFEX [Suspect]
     Indication: BONE MARROW CONDITIONING REGIMEN
     Dosage: 0.8-1.2 MG/KG, UNK
     Route: 042
  2. L-PAM [Suspect]
     Indication: BONE MARROW CONDITIONING REGIMEN
     Dosage: 140 MG/M2, UNK

REACTIONS (6)
  - Cardiotoxicity [Unknown]
  - Nephropathy toxic [Unknown]
  - Venoocclusive disease [Unknown]
  - Stomatitis [Unknown]
  - Diarrhoea [Unknown]
  - Transplant failure [Unknown]
